FAERS Safety Report 23807778 (Version 1)
Quarter: 2024Q2

REPORT INFORMATION
  Report Type: Spontaneous
  Country: FR (occurrence: FR)
  Receive Date: 20240502
  Receipt Date: 20240502
  Transmission Date: 20240716
  Serious: Yes (Other)
  Sender: FDA-Public Use
  Company Number: None

PATIENT
  Age: 28 Year
  Sex: Male

DRUGS (7)
  1. CLONAZEPAM [Suspect]
     Active Substance: CLONAZEPAM
     Indication: Anxiety
     Dates: start: 20231125
  2. CLONAZEPAM [Suspect]
     Active Substance: CLONAZEPAM
     Indication: Anxiety
     Dosage: THREE TIMES A WEEK
  3. ALCOHOL [Suspect]
     Active Substance: ALCOHOL
     Indication: Anxiety
     Dosage: ALCOHOL DRINK
     Route: 048
     Dates: start: 20231125
  4. ALCOHOL [Suspect]
     Active Substance: ALCOHOL
     Indication: Anxiety
     Dosage: 0.5 L OF VODKA
     Route: 048
  5. COCAINE [Suspect]
     Active Substance: COCAINE
     Indication: Anxiety
     Dates: start: 20231125
  6. COCAINE [Suspect]
     Active Substance: COCAINE
     Indication: Anxiety
     Dosage: TWICE A WEEK
  7. CANNABIS SATIVA SUBSP. INDICA TOP [Suspect]
     Active Substance: CANNABIS SATIVA SUBSP. INDICA TOP
     Dosage: DAILY DOSE: 0.5 GRAM

REACTIONS (7)
  - Tachycardia [Recovered/Resolved]
  - Chest pain [Recovered/Resolved]
  - Nausea [Recovered/Resolved]
  - Drug use disorder [Unknown]
  - Tetany [Unknown]
  - Bruxism [Unknown]
  - Toxicity to various agents [Unknown]

NARRATIVE: CASE EVENT DATE: 20240113
